FAERS Safety Report 25752478 (Version 2)
Quarter: 2025Q3

REPORT INFORMATION
  Report Type: Report from Study
  Country: US (occurrence: US)
  Receive Date: 20250902
  Receipt Date: 20250911
  Transmission Date: 20251021
  Serious: Yes (Hospitalization, Other)
  Sender: INCYTE
  Company Number: US-INCYTE CORPORATION-2025IN009414

PATIENT
  Weight: 3.246 kg

DRUGS (1)
  1. RUXOLITINIB [Suspect]
     Active Substance: RUXOLITINIB

REACTIONS (4)
  - Infection [Unknown]
  - Meconium in amniotic fluid [Recovered/Resolved]
  - Prolonged rupture of membranes [Recovered/Resolved]
  - Foetal exposure during pregnancy [Unknown]
